FAERS Safety Report 5164620-1 (Version None)
Quarter: 2006Q4

REPORT INFORMATION
  Report Type: 
  Country: None (occurrence: None)
  Receive Date: 20061205
  Receipt Date: 20061122
  Transmission Date: 20070319
  Serious: Yes (Death)
  Sender: FDA-Public Use
  Company Number: US-JNJFOC-20060901167

PATIENT
  Sex: Female

DRUGS (1)
  1. SPORANOX [Suspect]
     Indication: OSTEOMYELITIS
     Route: 048

REACTIONS (1)
  - MYOCARDIAL INFARCTION [None]
